FAERS Safety Report 5110555-X (Version None)
Quarter: 2006Q3

REPORT INFORMATION
  Report Type: 
  Country: None (occurrence: None)
  Receive Date: 20060915
  Receipt Date: 20060905
  Transmission Date: 20061208
  Serious: Yes (Other)
  Sender: FDA-Public Use
  Company Number: HQWYE437107SEP06

PATIENT
  Age: 44 Year
  Sex: Female

DRUGS (13)
  1. EFFEXOR XR [Suspect]
     Dosage: SEE IMAGE
     Dates: start: 20050101, end: 20051001
  2. EFFEXOR XR [Suspect]
     Dosage: SEE IMAGE
     Dates: start: 20060101, end: 20060101
  3. EFFEXOR XR [Suspect]
     Dosage: SEE IMAGE
     Dates: start: 20060601, end: 20060101
  4. EFFEXOR XR [Suspect]
     Dosage: SEE IMAGE
     Dates: start: 20051001, end: 20060601
  5. EFFEXOR XR [Suspect]
     Dosage: SEE IMAGE
     Dates: start: 20060601, end: 20060601
  6. EFFEXOR XR [Suspect]
     Dosage: SEE IMAGE
     Dates: start: 20060601, end: 20060607
  7. EFFEXOR XR [Suspect]
     Dosage: SEE IMAGE
     Dates: start: 20060101
  8. PREMARIN [Concomitant]
  9. HYDROCODONE (HYDROCODONE) [Concomitant]
  10. LIDODERM [Concomitant]
  11. FLEXERIL [Concomitant]
  12. MEDROL ACETATE [Concomitant]
  13. ULTRACET [Concomitant]

REACTIONS (19)
  - ALOPECIA [None]
  - APATHY [None]
  - ARTHRALGIA [None]
  - DEPRESSION [None]
  - DRUG DEPENDENCE [None]
  - DRUG WITHDRAWAL SYNDROME [None]
  - FEELING ABNORMAL [None]
  - HEADACHE [None]
  - INSOMNIA [None]
  - LOSS OF LIBIDO [None]
  - MIGRAINE [None]
  - MOOD SWINGS [None]
  - MUSCLE SWELLING [None]
  - MYALGIA [None]
  - NAUSEA [None]
  - SLEEP DISORDER [None]
  - UNEVALUABLE EVENT [None]
  - VERTIGO [None]
  - WEIGHT INCREASED [None]
